FAERS Safety Report 6860333-6 (Version None)
Quarter: 2010Q3

REPORT INFORMATION
  Report Type: 
  Country: None (occurrence: None)
  Receive Date: 20100720
  Receipt Date: 20100628
  Transmission Date: 20110219
  Serious: Yes (Other)
  Sender: FDA-Public Use
  Company Number: PHEH2010US03505

PATIENT
  Sex: Female

DRUGS (1)
  1. AREDIA [Suspect]
     Dosage: UNK
     Dates: start: 20010305, end: 20020222

REACTIONS (21)
  - ARTHRITIS [None]
  - ASTHMA [None]
  - ATELECTASIS [None]
  - BRONCHITIS [None]
  - CARDIOMEGALY [None]
  - CHEST TUBE INSERTION [None]
  - CUSHINGOID [None]
  - DERMATITIS ATOPIC [None]
  - FISTULA REPAIR [None]
  - GOITRE [None]
  - INTERVERTEBRAL DISC SPACE NARROWING [None]
  - MEDIASTINAL DISORDER [None]
  - MITRAL VALVE INCOMPETENCE [None]
  - OESOPHAGEAL MASS [None]
  - PNEUMOTHORAX [None]
  - PULMONARY MASS [None]
  - SEBORRHOEIC DERMATITIS [None]
  - SYNOVIAL CYST [None]
  - TONGUE DISORDER [None]
  - TRACHEO-OESOPHAGEAL FISTULA [None]
  - TRICUSPID VALVE INCOMPETENCE [None]
